FAERS Safety Report 22297393 (Version 2)
Quarter: 2023Q2

REPORT INFORMATION
  Report Type: Spontaneous
  Country: DE (occurrence: DE)
  Receive Date: 20230509
  Receipt Date: 20230526
  Transmission Date: 20230721
  Serious: Yes (Other)
  Sender: FDA-Public Use
  Company Number: DE-PFIZER INC-202300096747

PATIENT
  Age: 39 Year
  Sex: Female
  Weight: 87 kg

DRUGS (9)
  1. METHOTREXATE SODIUM [Suspect]
     Active Substance: METHOTREXATE SODIUM
     Indication: Psoriatic arthropathy
     Dosage: 15 MG, QW
     Route: 058
  2. METHOTREXATE SODIUM [Suspect]
     Active Substance: METHOTREXATE SODIUM
     Indication: Psoriasis
     Dosage: 20 MG, QW
     Route: 058
     Dates: start: 20220724, end: 20221020
  3. NALOXONE HYDROCHLORIDE\OXYCODONE HYDROCHLORIDE [Concomitant]
     Active Substance: NALOXONE HYDROCHLORIDE\OXYCODONE HYDROCHLORIDE
     Indication: Pain
     Dosage: 5/25, 1X/DAY - 1X/DAY
     Route: 065
     Dates: start: 202207
  4. NALOXONE HYDROCHLORIDE\OXYCODONE HYDROCHLORIDE [Concomitant]
     Active Substance: NALOXONE HYDROCHLORIDE\OXYCODONE HYDROCHLORIDE
     Dosage: 10/5, 2X/DAY- 2X/DAY
     Route: 065
     Dates: start: 202207
  5. CELEBREX [Concomitant]
     Active Substance: CELECOXIB
     Indication: Rheumatic disorder
     Dosage: 400 MG, QD (2X/DAY)
     Route: 065
     Dates: start: 202207
  6. PREDNISOLONE [Concomitant]
     Active Substance: PREDNISOLONE
     Indication: Inflammation
     Dosage: 20 MG, QD (1X/DAY)
     Route: 065
     Dates: start: 202007
  7. AMITRIPTYLINE [Concomitant]
     Active Substance: AMITRIPTYLINE
     Indication: Neuralgia
     Dosage: 20 MG, QD (1X/DAY )
     Route: 065
     Dates: start: 202207
  8. AMITRIPTYLINE [Concomitant]
     Active Substance: AMITRIPTYLINE
     Indication: Depression
  9. PANTOZOL [Concomitant]
     Active Substance: PANTOPRAZOLE SODIUM
     Indication: Prophylaxis
     Dosage: 20 MG
     Route: 065

REACTIONS (7)
  - Psoriatic arthropathy [Unknown]
  - Lack of satiety [Unknown]
  - Pain [Unknown]
  - Weight increased [Recovered/Resolved]
  - Alopecia [Recovered/Resolved]
  - Off label use [Unknown]
  - Drug ineffective [Recovered/Resolved]

NARRATIVE: CASE EVENT DATE: 20220724
